FAERS Safety Report 8536555-5 (Version None)
Quarter: 2012Q3

REPORT INFORMATION
  Report Type: 
  Country: None (occurrence: None)
  Receive Date: 20120725
  Receipt Date: 20120719
  Transmission Date: 20120928
  Serious: Yes (Other)
  Sender: FDA-Public Use
  Company Number: ES-AMGEN-ESPSP2012045088

PATIENT
  Age: 72 Year
  Sex: Male

DRUGS (4)
  1. CINACALCET HYDROCHLORIDE [Suspect]
     Indication: HYPERPARATHYROIDISM SECONDARY
     Dosage: UNK
  2. CALCIFEDIOL [Concomitant]
     Indication: HYPERPARATHYROIDISM SECONDARY
     Dosage: UNK
  3. CALCITRIOL [Concomitant]
     Indication: HYPERPARATHYROIDISM SECONDARY
     Dosage: UNK
  4. PARICALCITOL [Concomitant]
     Indication: HYPERPARATHYROIDISM SECONDARY
     Dosage: UNK

REACTIONS (3)
  - BLOOD ALKALINE PHOSPHATASE INCREASED [None]
  - OSTEITIS DEFORMANS [None]
  - BLOOD PARATHYROID HORMONE INCREASED [None]
